FAERS Safety Report 6608300-1 (Version None)
Quarter: 2010Q1

REPORT INFORMATION
  Report Type: 
  Country: None (occurrence: None)
  Receive Date: 20100301
  Receipt Date: 20100218
  Transmission Date: 20100710
  Serious: Yes (Other)
  Sender: FDA-Public Use
  Company Number: US-ASTRAZENECA-2010SE07101

PATIENT
  Age: 56 Year
  Sex: Female
  Weight: 90.7 kg

DRUGS (7)
  1. NEXIUM [Suspect]
     Route: 048
     Dates: start: 20010101
  2. OMEPRAZOLE [Suspect]
  3. RANITIDINE [Suspect]
  4. GABAPENTIN [Concomitant]
  5. BENAZAPRIL [Concomitant]
  6. HYDROXYZINE [Concomitant]
  7. BLOOD PRESSURE PILL [Concomitant]

REACTIONS (5)
  - ABDOMINAL PAIN [None]
  - CEREBROVASCULAR ACCIDENT [None]
  - DRUG DOSE OMISSION [None]
  - GASTROOESOPHAGEAL REFLUX DISEASE [None]
  - HAEMATEMESIS [None]
